FAERS Safety Report 21136252 (Version 1)
Quarter: 2022Q3

REPORT INFORMATION
  Report Type: Spontaneous
  Country: CN (occurrence: CN)
  Receive Date: 20220727
  Receipt Date: 20220727
  Transmission Date: 20221026
  Serious: Yes (Other)
  Sender: FDA-Public Use
  Company Number: CN-NOVARTISPH-NVSC2022CN168352

PATIENT
  Age: 9 Year
  Weight: 28 kg

DRUGS (3)
  1. TRILEPTAL [Suspect]
     Active Substance: OXCARBAZEPINE
     Indication: Epilepsy
     Dosage: UNK
     Route: 048
  2. TRILEPTAL [Suspect]
     Active Substance: OXCARBAZEPINE
     Dosage: UNK, DAY 4 OF WEEK 4
     Route: 048
  3. TRILEPTAL [Suspect]
     Active Substance: OXCARBAZEPINE
     Dosage: 3.5 DOSAGE FORM (1.5 TABLETS IN MORNING AND 2 IN EVENING)
     Route: 048
     Dates: start: 20220719

REACTIONS (4)
  - Epilepsy [Unknown]
  - Face oedema [Not Recovered/Not Resolved]
  - Skin plaque [Recovered/Resolved]
  - Wrong technique in product usage process [Unknown]

NARRATIVE: CASE EVENT DATE: 20220720
